FAERS Safety Report 6097390-3 (Version None)
Quarter: 2009Q1

REPORT INFORMATION
  Report Type: 
  Country: None (occurrence: None)
  Receive Date: 20090227
  Receipt Date: 20080423
  Transmission Date: 20090719
  Serious: No
  Sender: FDA-Public Use
  Company Number: A0710531A

PATIENT
  Age: 54 Year
  Sex: Female

DRUGS (3)
  1. IMITREX [Suspect]
     Indication: MIGRAINE
     Dosage: 6MG AS REQUIRED
     Route: 058
     Dates: start: 20030101
  2. TOPAMAX [Concomitant]
  3. TOPROL-XL [Concomitant]

REACTIONS (3)
  - INSOMNIA [None]
  - PRODUCT QUALITY ISSUE [None]
  - TENSION [None]
